FAERS Safety Report 8043542-2 (Version None)
Quarter: 2012Q1

REPORT INFORMATION
  Report Type: 
  Country: None (occurrence: None)
  Receive Date: 20120112
  Receipt Date: 20120110
  Transmission Date: 20120608
  Serious: Yes (Other)
  Sender: FDA-Public Use
  Company Number: BR-ROCHE-744580

PATIENT
  Sex: Female
  Weight: 45 kg

DRUGS (1)
  1. ISOTRETINOIN [Suspect]
     Indication: ACNE
     Route: 048
     Dates: start: 20100511, end: 20101001

REACTIONS (2)
  - ABORTION SPONTANEOUS [None]
  - PREGNANCY [None]
